FAERS Safety Report 24760101 (Version 1)
Quarter: 2024Q4

REPORT INFORMATION
  Report Type: Spontaneous
  Country: CA (occurrence: CA)
  Receive Date: 20241220
  Receipt Date: 20241220
  Transmission Date: 20250114
  Serious: Yes (Other)
  Sender: JOHNSON AND JOHNSON
  Company Number: None

PATIENT
  Age: 53 Year
  Sex: Male

DRUGS (57)
  1. ACETAMINOPHEN\TRAMADOL [Suspect]
     Active Substance: ACETAMINOPHEN\TRAMADOL
     Indication: Product used for unknown indication
     Dosage: UNK
  2. TOPIRAMATE [Suspect]
     Active Substance: TOPIRAMATE
     Indication: Migraine
     Dosage: UNK
  3. ESOMEPRAZOLE MAGNESIUM [Suspect]
     Active Substance: ESOMEPRAZOLE MAGNESIUM
     Indication: Product used for unknown indication
     Dosage: UNK
  4. NAPROXEN [Suspect]
     Active Substance: NAPROXEN
     Indication: Product used for unknown indication
     Dosage: 250 MILLIGRAM
  5. PROPRANOLOL [Suspect]
     Active Substance: PROPRANOLOL HYDROCHLORIDE
     Indication: Migraine
     Dosage: UNK
  6. DICLOFENAC [Suspect]
     Active Substance: DICLOFENAC
     Indication: Product used for unknown indication
     Dosage: UNK
  7. TYLENOL [Suspect]
     Active Substance: ACETAMINOPHEN
     Dosage: UNK
  8. TYLENOL [Suspect]
     Active Substance: ACETAMINOPHEN
     Dosage: UNK
  9. TYLENOL [Suspect]
     Active Substance: ACETAMINOPHEN
     Dosage: UNK
  10. TYLENOL [Suspect]
     Active Substance: ACETAMINOPHEN
     Dosage: UNK
  11. TYLENOL [Suspect]
     Active Substance: ACETAMINOPHEN
     Dosage: UNK
  12. TYLENOL [Suspect]
     Active Substance: ACETAMINOPHEN
     Dosage: UNK
  13. TYLENOL [Suspect]
     Active Substance: ACETAMINOPHEN
     Dosage: UNK
  14. TYLENOL [Suspect]
     Active Substance: ACETAMINOPHEN
     Dosage: UNK
  15. ADVIL [Suspect]
     Active Substance: IBUPROFEN
     Indication: Product used for unknown indication
     Dosage: UNK
  16. VENLAFAXINE [Suspect]
     Active Substance: VENLAFAXINE HYDROCHLORIDE
     Indication: Migraine
     Dosage: 37.5 MILLIGRAM
  17. ONDANSETRON HYDROCHLORIDE [Suspect]
     Active Substance: ONDANSETRON HYDROCHLORIDE
     Indication: Migraine
     Dosage: UNK
  18. DIHYDROERGOTAMINE MESYLATE [Suspect]
     Active Substance: DIHYDROERGOTAMINE MESYLATE
     Indication: Migraine
     Dosage: UNK
  19. GABAPENTIN [Suspect]
     Active Substance: GABAPENTIN
     Indication: Product used for unknown indication
     Dosage: UNK
  20. TRIAMCINOLONE ACETONIDE [Suspect]
     Active Substance: TRIAMCINOLONE ACETONIDE
     Indication: Migraine
     Dosage: UNK
  21. HYDROMORPHONE [Suspect]
     Active Substance: HYDROMORPHONE
     Indication: Migraine
     Dosage: UNK
  22. CODEINE PHOSPHATE [Suspect]
     Active Substance: CODEINE PHOSPHATE
     Indication: Product used for unknown indication
     Dosage: UNK
  23. CODEINE PHOSPHATE [Suspect]
     Active Substance: CODEINE PHOSPHATE
     Indication: Migraine
  24. DEMEROL [Suspect]
     Active Substance: MEPERIDINE HYDROCHLORIDE
     Indication: Product used for unknown indication
     Dosage: UNK
  25. KETAMINE HYDROCHLORIDE [Suspect]
     Active Substance: KETAMINE HYDROCHLORIDE
     Indication: Product used for unknown indication
     Dosage: UNK
  26. CELEBREX [Suspect]
     Active Substance: CELECOXIB
     Indication: Product used for unknown indication
     Dosage: 200 MILLIGRAM
  27. CELEBREX [Suspect]
     Active Substance: CELECOXIB
     Dosage: UNK
  28. ENDOCET [Suspect]
     Active Substance: ACETAMINOPHEN\OXYCODONE HYDROCHLORIDE
     Dosage: UNK
  29. BOTOX [Suspect]
     Active Substance: ONABOTULINUMTOXINA
     Indication: Product used for unknown indication
     Dosage: 1 DOSAGE FORM
  30. BOTOX [Suspect]
     Active Substance: ONABOTULINUMTOXINA
     Dosage: 200 MILLIGRAM
  31. BOTOX [Suspect]
     Active Substance: ONABOTULINUMTOXINA
     Dosage: UNK
  32. DULOXETINE [Suspect]
     Active Substance: DULOXETINE
     Indication: Migraine
     Dosage: 60 MILLIGRAM
  33. DULOXETINE [Suspect]
     Active Substance: DULOXETINE
     Dosage: UNK
  34. NORTRIPTYLINE [Suspect]
     Active Substance: NORTRIPTYLINE
     Indication: Product used for unknown indication
     Dosage: UNK
  35. MORPHINE SULFATE [Suspect]
     Active Substance: MORPHINE SULFATE
     Indication: Product used for unknown indication
     Dosage: UNK
  36. BOTULINUM TOXIN TYPE A [Suspect]
     Active Substance: BOTULINUM TOXIN TYPE A
     Indication: Product used for unknown indication
     Dosage: 1 DOSAGE FORM
  37. BOTULINUM TOXIN TYPE A [Suspect]
     Active Substance: BOTULINUM TOXIN TYPE A
     Dosage: 200 MILLIGRAM
  38. BOTULINUM TOXIN TYPE A [Suspect]
     Active Substance: BOTULINUM TOXIN TYPE A
     Dosage: 1 DOSAGE FORM
  39. BOTULINUM TOXIN TYPE A [Suspect]
     Active Substance: BOTULINUM TOXIN TYPE A
     Dosage: UNK
  40. TENORETIC [Suspect]
     Active Substance: ATENOLOL\CHLORTHALIDONE
     Indication: Product used for unknown indication
     Dosage: 150 MILLIGRAM
  41. TENORETIC [Suspect]
     Active Substance: ATENOLOL\CHLORTHALIDONE
     Dosage: 15 MILLIGRAM
  42. ALMOTRIPTAN MALATE [Suspect]
     Active Substance: ALMOTRIPTAN MALATE
     Indication: Product used for unknown indication
     Dosage: UNK
  43. AMITRIPTYLINE [Suspect]
     Active Substance: AMITRIPTYLINE
     Indication: Product used for unknown indication
     Dosage: UNK
  44. TORADOL [Suspect]
     Active Substance: KETOROLAC TROMETHAMINE
     Indication: Migraine
     Dosage: UNK
  45. ZOFRAN [Suspect]
     Active Substance: ONDANSETRON HYDROCHLORIDE
     Indication: Migraine
     Dosage: UNK
  46. MAXALT [Suspect]
     Active Substance: RIZATRIPTAN BENZOATE
     Indication: Product used for unknown indication
     Dosage: UNK
  47. CODEINE [Suspect]
     Active Substance: CODEINE
     Indication: Migraine
     Dosage: UNK
  48. CODEINE [Suspect]
     Active Substance: CODEINE
     Dosage: UNK
  49. ACETAMINOPHEN [Suspect]
     Active Substance: ACETAMINOPHEN
     Dosage: UNK
  50. NEXIUM [Concomitant]
     Active Substance: ESOMEPRAZOLE MAGNESIUM
     Indication: Product used for unknown indication
     Dosage: UNK
  51. TOPAMAX [Concomitant]
     Active Substance: TOPIRAMATE
     Indication: Product used for unknown indication
     Dosage: UNK
  52. IBUPROFEN [Concomitant]
     Active Substance: IBUPROFEN
     Indication: Product used for unknown indication
     Dosage: UNK
  53. VOLTAREN [Concomitant]
     Active Substance: DICLOFENAC SODIUM
     Indication: Migraine
     Dosage: UNK
  54. TRIAMCINOLONE [Concomitant]
     Active Substance: TRIAMCINOLONE
     Indication: Migraine
     Dosage: UNK
  55. PANADOL [Concomitant]
     Active Substance: ACETAMINOPHEN
     Indication: Product used for unknown indication
     Dosage: UNK
  56. VIMOVO [Concomitant]
     Active Substance: ESOMEPRAZOLE MAGNESIUM\NAPROXEN
     Indication: Product used for unknown indication
     Dosage: UNK
  57. DIHYDROERGOTAMINE [Concomitant]
     Active Substance: DIHYDROERGOTAMINE
     Indication: Migraine
     Dosage: UNK

REACTIONS (8)
  - Drug ineffective [Unknown]
  - Hyperhidrosis [Unknown]
  - Nausea [Unknown]
  - Nephrolithiasis [Unknown]
  - Nightmare [Unknown]
  - Sedation [Unknown]
  - Off label use [Unknown]
  - Product use in unapproved indication [Unknown]
